FAERS Safety Report 17599039 (Version 12)
Quarter: 2021Q1

REPORT INFORMATION
  Report Type: Spontaneous
  Country: IL (occurrence: IL)
  Receive Date: 20200330
  Receipt Date: 20210319
  Transmission Date: 20210419
  Serious: Yes (Other)
  Sender: FDA-Public Use
  Company Number: IL-PFIZER INC-2019104227

PATIENT
  Age: 6 Decade
  Sex: Female

DRUGS (5)
  1. ELELYSO [Suspect]
     Active Substance: TALIGLUCERASE ALFA
     Dosage: 1400 IU, TWICE MONTHLY
     Route: 042
  2. ELELYSO [Suspect]
     Active Substance: TALIGLUCERASE ALFA
     Dosage: 1400 IU, TWICE MONTHLY
     Route: 042
  3. ELELYSO [Suspect]
     Active Substance: TALIGLUCERASE ALFA
     Dosage: 1400 IU, TWICE A MONTH
     Route: 042
  4. ELELYSO [Suspect]
     Active Substance: TALIGLUCERASE ALFA
     Dosage: 1400 IU, TWICE MONTHLY
     Route: 042
  5. ELELYSO [Suspect]
     Active Substance: TALIGLUCERASE ALFA
     Dosage: 1400 IU, TWICE MONTHLY
     Route: 042

REACTIONS (9)
  - Intentional dose omission [Unknown]
  - Product dose omission issue [Unknown]
  - Asthenia [Recovering/Resolving]
  - Injury associated with device [Unknown]
  - Inappropriate schedule of product administration [Unknown]
  - Limb fracture [Unknown]
  - Fall [Unknown]
  - Localised infection [Unknown]
  - Intentional product misuse [Unknown]

NARRATIVE: CASE EVENT DATE: 201908
